FAERS Safety Report 5124914-2 (Version None)
Quarter: 2006Q4

REPORT INFORMATION
  Report Type: 
  Country: None (occurrence: None)
  Receive Date: 20061006
  Receipt Date: 20060929
  Transmission Date: 20070319
  Serious: Yes (Hospitalization)
  Sender: FDA-Public Use
  Company Number: B0440867A

PATIENT
  Sex: Female

DRUGS (1)
  1. FORTAZ [Suspect]
     Indication: DRUG USE FOR UNKNOWN INDICATION
     Dosage: 2 GRAM(S)/TWICE PER DAY/

REACTIONS (2)
  - BLOOD SODIUM INCREASED [None]
  - DEHYDRATION [None]
